FAERS Safety Report 7000285-1 (Version None)
Quarter: 2010Q3

REPORT INFORMATION
  Report Type: 
  Country: None (occurrence: None)
  Receive Date: 20100920
  Receipt Date: 20100714
  Transmission Date: 20110219
  Serious: No
  Sender: FDA-Public Use
  Company Number: US-ASTRAZENECA-2010SE33038

PATIENT
  Age: 47 Year
  Sex: Female
  Weight: 64.9 kg

DRUGS (3)
  1. SEROQUEL [Suspect]
     Indication: BIPOLAR II DISORDER
     Route: 048
     Dates: start: 20100101, end: 20100101
  2. SEROQUEL [Suspect]
     Dosage: SPLITTING A 25 MG TABLET AND TAKING THE HALVES DURING THE DAY AND THEN 25 MG TAB HS
     Route: 048
     Dates: start: 20100702, end: 20100706
  3. RITALIN [Concomitant]

REACTIONS (5)
  - HALLUCINATION [None]
  - PARTIAL SEIZURES [None]
  - TINNITUS [None]
  - VOMITING [None]
  - WRONG TECHNIQUE IN DRUG USAGE PROCESS [None]
